FAERS Safety Report 13836487 (Version 1)
Quarter: 2017Q3

REPORT INFORMATION
  Report Type: Spontaneous
  Country: US (occurrence: US)
  Receive Date: 20170804
  Receipt Date: 20170804
  Transmission Date: 20171127
  Serious: Yes (Hospitalization, Other)
  Sender: FDA-Public Use
  Company Number: US-DRREDDYS-USA/USA/17/0088578

PATIENT
  Age: 85 Year
  Sex: Female

DRUGS (6)
  1. RAMIPRIL. [Concomitant]
     Active Substance: RAMIPRIL
     Indication: PRODUCT USED FOR UNKNOWN INDICATION
     Dosage: 5 MG EVERY MORNING AND 10 MG EVERY BEDTIME
  2. CIPROFLOXACIN. [Suspect]
     Active Substance: CIPROFLOXACIN
     Indication: URINARY TRACT INFECTION
     Route: 065
  3. TIMOLOL. [Concomitant]
     Active Substance: TIMOLOL
     Indication: PRODUCT USED FOR UNKNOWN INDICATION
  4. CLONAZEPAM. [Concomitant]
     Active Substance: CLONAZEPAM
     Indication: GENERALISED ANXIETY DISORDER
     Route: 065
  5. CLONAZEPAM. [Concomitant]
     Active Substance: CLONAZEPAM
     Dosage: 1 TO 2 TIMES PER MONTH
     Route: 065
  6. RAMIPRIL. [Concomitant]
     Active Substance: RAMIPRIL
     Dosage: 5 MG EVERY MORNING AND 10 MG EVERY BEDTIME

REACTIONS (1)
  - Anxiety [Recovering/Resolving]
